FAERS Safety Report 11024693 (Version 1)
Quarter: 2015Q2

REPORT INFORMATION
  Report Type: Spontaneous
  Country: US (occurrence: US)
  Receive Date: 20150414
  Receipt Date: 20150414
  Transmission Date: 20150821
  Serious: Yes (Hospitalization)
  Sender: FDA-Public Use
  Company Number: US-JNJFOC-20150205950

PATIENT
  Age: 46 Year
  Sex: Female
  Weight: 85 kg

DRUGS (11)
  1. SERETIDE [Concomitant]
     Active Substance: FLUTICASONE FUROATE\SALMETEROL XINAFOATE
     Indication: ASTHMA
     Route: 065
     Dates: start: 20020301
  2. LANSOPRAZOLE. [Concomitant]
     Active Substance: LANSOPRAZOLE
     Indication: GASTROINTESTINAL DISORDER THERAPY
     Route: 065
     Dates: start: 20141023
  3. TEICOPLANIN [Concomitant]
     Active Substance: TEICOPLANIN
     Indication: FEBRILE NEUTROPENIA
     Route: 065
     Dates: start: 20141106, end: 20141111
  4. ALIZAPRIDE [Concomitant]
     Active Substance: ALIZAPRIDE
     Indication: NAUSEA
     Route: 065
     Dates: start: 20141031, end: 20141114
  5. DOCETAXEL. [Suspect]
     Active Substance: DOCETAXEL
     Indication: BREAST CANCER
     Dosage: (DAY 1, EVERY 3 WEEKS)
     Route: 042
     Dates: start: 20141023
  6. DOCETAXEL. [Suspect]
     Active Substance: DOCETAXEL
     Indication: BREAST CANCER
     Dosage: C2D1 (DAY 1, EVERY 3 WEEKS)
     Route: 042
     Dates: start: 20141119
  7. SERETIDE [Concomitant]
     Active Substance: FLUTICASONE FUROATE\SALMETEROL XINAFOATE
     Indication: HYPERSENSITIVITY
     Route: 065
     Dates: start: 20020301
  8. LOPERAMIDE [Suspect]
     Active Substance: LOPERAMIDE
     Indication: DIARRHOEA
     Route: 065
     Dates: start: 20141102
  9. NYSTATINE [Concomitant]
     Indication: MUCOSITIS MANAGEMENT
     Route: 065
     Dates: start: 20141031
  10. LOPERAMIDE [Suspect]
     Active Substance: LOPERAMIDE
     Route: 065
  11. PARACETAMOL [Concomitant]
     Active Substance: ACETAMINOPHEN
     Indication: PYREXIA
     Route: 065
     Dates: start: 20141031

REACTIONS (2)
  - Drug ineffective [Unknown]
  - Intestinal obstruction [Recovered/Resolved]

NARRATIVE: CASE EVENT DATE: 20141107
